FAERS Safety Report 5764065-7 (Version None)
Quarter: 2008Q2

REPORT INFORMATION
  Report Type: 
  Country: None (occurrence: None)
  Receive Date: 20080605
  Receipt Date: 20080520
  Transmission Date: 20081010
  Serious: Yes (Other)
  Sender: FDA-Public Use
  Company Number: 08-000822

PATIENT
  Age: 22 Year
  Sex: Female

DRUGS (1)
  1. LOESTRIN 24 FE [Suspect]
     Indication: CONTRACEPTION
     Dosage: 20/1000 UG,QD;ORAL
     Route: 048
     Dates: start: 20041201, end: 20080501

REACTIONS (4)
  - ASTIGMATISM [None]
  - MYOPIA [None]
  - ROTATOR CUFF SYNDROME [None]
  - VISUAL DISTURBANCE [None]
